FAERS Safety Report 12155960 (Version 1)
Quarter: 2016Q1

REPORT INFORMATION
  Report Type: Spontaneous
  Country: CH (occurrence: CH)
  Receive Date: 20160307
  Receipt Date: 20160307
  Transmission Date: 20160526
  Serious: Yes (Hospitalization, Disabling)
  Sender: FDA-Public Use
  Company Number: CH-TEVA-641253ISR

PATIENT
  Age: 63 Year
  Sex: Female

DRUGS (13)
  1. ALENDRON [Suspect]
     Active Substance: ALENDRONATE SODIUM
     Dosage: UNSPECIFIED STRENGTH
     Route: 048
     Dates: start: 20150615, end: 20150630
  2. SEROQUEL [Suspect]
     Active Substance: QUETIAPINE FUMARATE
     Dosage: 25 MILLIGRAM DAILY;
     Route: 048
     Dates: start: 20150615
  3. SEROQUEL [Suspect]
     Active Substance: QUETIAPINE FUMARATE
     Dosage: 50 MILLIGRAM DAILY; UNSPECIFIED STRENGTH
     Route: 048
     Dates: start: 20150616
  4. LYRICA [Suspect]
     Active Substance: PREGABALIN
     Dosage: 200 MILLIGRAM DAILY; UNSPECIFIED STRENGTH
     Route: 048
     Dates: start: 20150630
  5. XANAX [Suspect]
     Active Substance: ALPRAZOLAM
     Dosage: 4 MILLIGRAM DAILY; UNSPECIFIED STRENGTH, DOSING REGIMEN REPORTED AS -PER 1 DAY
     Route: 048
     Dates: start: 20150615, end: 20150630
  6. PANTOZOL [Concomitant]
     Active Substance: PANTOPRAZOLE SODIUM
     Dosage: 20 MILLIGRAM DAILY; UNSPECIFIED STRENGTH, DOSING REGIMEN REPORTED AS -PER 1 DAYS
     Route: 048
     Dates: start: 20150615, end: 20150630
  7. LYRICA [Suspect]
     Active Substance: PREGABALIN
     Dosage: 100 MILLIGRAM DAILY;
     Route: 048
     Dates: start: 20150626, end: 20150629
  8. SEROQUEL [Suspect]
     Active Substance: QUETIAPINE FUMARATE
     Dosage: 200 MILLIGRAM DAILY; UNSPECIFIED STRENGTH
     Route: 048
     Dates: start: 20150620, end: 20150719
  9. REMINYL [Concomitant]
     Active Substance: GALANTAMINE
     Dosage: UNSPECIFIED STRENGTH, DOSING REGIMEN REPORTED AS -PER 1 WEEKS
     Route: 048
     Dates: start: 20150615, end: 20150630
  10. TEMESTA [Suspect]
     Active Substance: LORAZEPAM
     Dosage: 1 MILLIGRAM DAILY; UNSPECIFIED STRENGTH, DOSING REGIMEN REPORTED AS -PER 1 DAY
     Route: 048
     Dates: start: 20150615, end: 20150630
  11. SEROQUEL [Suspect]
     Active Substance: QUETIAPINE FUMARATE
     Dosage: 100 MILLIGRAM DAILY; UNSPECIFIED STRENGTH
     Route: 048
     Dates: start: 20150617
  12. SEROQUEL [Suspect]
     Active Substance: QUETIAPINE FUMARATE
     Dosage: 150 MILLIGRAM DAILY; UNSPECIFIED STRENGTH
     Route: 048
     Dates: start: 20150618, end: 20150619
  13. STILNOX [Suspect]
     Active Substance: ZOLPIDEM TARTRATE
     Dosage: 10 MILLIGRAM DAILY; UNSPECIFIED STRENGTH, DOSING REGIMEN REPORTED AS -PER 1 DAY
     Route: 048
     Dates: start: 20150615, end: 20150630

REACTIONS (2)
  - Embolism [None]
  - Cerebrovascular accident [Not Recovered/Not Resolved]

NARRATIVE: CASE EVENT DATE: 20150630
